FAERS Safety Report 25643980 (Version 2)
Quarter: 2025Q4

REPORT INFORMATION
  Report Type: Spontaneous
  Country: EU (occurrence: EU)
  Receive Date: 20250805
  Receipt Date: 20251030
  Transmission Date: 20260117
  Serious: Yes (Hospitalization)
  Sender: RANBAXY
  Company Number: EU-SUN PHARMACEUTICAL INDUSTRIES LTD-2025RR-520276

PATIENT
  Age: 52 Year
  Sex: Female
  Weight: 120 kg

DRUGS (3)
  1. VENLAFAXINE [Suspect]
     Active Substance: VENLAFAXINE HYDROCHLORIDE
     Indication: Product used for unknown indication
     Dosage: 300 MILLIGRAM, IN TOTAL
     Route: 048
     Dates: start: 20250402, end: 20250402
  2. TRAMADOL [Suspect]
     Active Substance: TRAMADOL
     Indication: Suicide attempt
     Dosage: 250 MILLIGRAM, IN TOTAL
     Route: 048
     Dates: start: 20250402, end: 20250402
  3. ESTAZOLAM [Suspect]
     Active Substance: ESTAZOLAM
     Indication: Suicide attempt
     Dosage: 4 MILLIGRAM, TOTAL 1
     Route: 048
     Dates: start: 20250402, end: 20250402

REACTIONS (1)
  - Suicide attempt [Recovered/Resolved]

NARRATIVE: CASE EVENT DATE: 20250402
